FAERS Safety Report 8246777-9 (Version None)
Quarter: 2012Q1

REPORT INFORMATION
  Report Type: 
  Country: None (occurrence: None)
  Receive Date: 20120330
  Receipt Date: 20120326
  Transmission Date: 20120608
  Serious: Yes (Other)
  Sender: FDA-Public Use
  Company Number: US-PFIZER INC-2012015137

PATIENT
  Sex: Male

DRUGS (5)
  1. SIMVASTATIN [Concomitant]
     Dosage: 40 MG, UNK
  2. PLAVIX [Concomitant]
     Dosage: 75 MG, UNK
  3. LIPITOR [Suspect]
     Indication: LOW DENSITY LIPOPROTEIN INCREASED
     Dosage: 40 MG, 1X/DAY
     Route: 048
  4. COMBIVENT [Concomitant]
     Dosage: 103-18, UNK
  5. SYMBICORT [Concomitant]
     Dosage: 160/4.5,UNK

REACTIONS (1)
  - CARDIAC DISORDER [None]
